FAERS Safety Report 16676752 (Version 1)
Quarter: 2019Q3

REPORT INFORMATION
  Report Type: Report from Study
  Country: IN (occurrence: IN)
  Receive Date: 20190807
  Receipt Date: 20190807
  Transmission Date: 20191004
  Serious: Yes (Hospitalization)
  Sender: FDA-Public Use
  Company Number: IN-KARYOPHARM-2019KPT000210

PATIENT
  Age: 52 Year
  Sex: Female
  Weight: 54 kg

DRUGS (17)
  1. ULTRACET [Concomitant]
     Active Substance: ACETAMINOPHEN\TRAMADOL HYDROCHLORIDE
     Indication: PAIN
     Dosage: 50 MG, TID
     Route: 048
     Dates: start: 20180811
  2. DEXAMETHASONE. [Suspect]
     Active Substance: DEXAMETHASONE
     Indication: PLASMA CELL MYELOMA
     Dosage: 20 MG, 4X/WEEK FOR 2 WEEKS, 1 WEEK OFF CYCLE
     Route: 048
     Dates: start: 20180808, end: 20190113
  3. ZOVIRAX [Concomitant]
     Active Substance: ACYCLOVIR
     Indication: VIRAL INFECTION
     Dosage: 200 MG, BID
     Route: 048
     Dates: start: 20180816
  4. OLEANZ [Concomitant]
     Active Substance: OLANZAPINE
     Indication: NAUSEA
     Dosage: 5 MG, QD
     Route: 048
     Dates: start: 20190320
  5. GELUSIL [Concomitant]
     Active Substance: ALUMINUM HYDROXIDE\DIMETHICONE\MAGNESIUM HYDROXIDE
     Indication: GASTRITIS
     Dosage: 5 ML, PRN
     Route: 048
     Dates: start: 20190123, end: 20190403
  6. ONDANSETRON [Concomitant]
     Active Substance: ONDANSETRON
     Indication: VOMITING
     Dosage: 8 MG, PRN
     Route: 042
     Dates: start: 20180808
  7. BORTEZOMIB. [Suspect]
     Active Substance: BORTEZOMIB
     Dosage: 1.3 MG/M2, WEEKLY, FOR 4 WEEKS, 1 WEEK OFF CYCLE
     Dates: start: 20190123
  8. FOSARON [Concomitant]
     Indication: VOMITING
     Dosage: 150 MG, SINGLE
     Route: 058
     Dates: start: 20190403, end: 20190403
  9. LOPERAMIDE [Concomitant]
     Active Substance: LOPERAMIDE
     Indication: DIARRHOEA
     Dosage: 2 MG, PRN
     Route: 048
     Dates: start: 20180811
  10. DEXAMETHASONE. [Suspect]
     Active Substance: DEXAMETHASONE
     Dosage: 20 MG, 2X/WEEK FOR 5 WEEKS CYCLE
     Dates: start: 20190123
  11. PALGIN [Concomitant]
     Active Substance: AMINOPYRINE\ANTIPYRINE\CAFFEINE\PHENACETIN
     Indication: VOMITING
     Dosage: 0.25 MG, SINGLE
     Route: 058
     Dates: start: 20190403, end: 20190403
  12. PAN D [Concomitant]
     Indication: GASTRITIS
     Dosage: 40 MG, QD
     Route: 048
     Dates: start: 20190123
  13. DARBEPOETIN ALFA [Concomitant]
     Active Substance: DARBEPOETIN ALFA
     Indication: ANAEMIA
     Dosage: 40 MCG, WEEKLY
     Route: 042
     Dates: start: 20190130, end: 20190403
  14. MAHAGABA M [Concomitant]
     Indication: PAIN
     Dosage: 75 MG, QD
     Route: 048
     Dates: start: 20180811
  15. SELINEXOR [Suspect]
     Active Substance: SELINEXOR
     Indication: PLASMA CELL MYELOMA
     Dosage: 100 MG, WEEKLY
     Route: 048
     Dates: start: 20190123
  16. BORTEZOMIB. [Suspect]
     Active Substance: BORTEZOMIB
     Indication: PLASMA CELL MYELOMA
     Dosage: 1.3 MG/M2, 2X/WEEK FOR 2 WEEKS, 1 WEEK OFF,
     Route: 058
     Dates: start: 20180808, end: 20190112
  17. DYNAPAR [Concomitant]
     Indication: PAIN
     Dosage: 1 DF, PRN
     Route: 058
     Dates: start: 20190306

REACTIONS (2)
  - Thrombocytopenia [Recovered/Resolved]
  - Abdominal pain [Recovered/Resolved]

NARRATIVE: CASE EVENT DATE: 20190408
